FAERS Safety Report 11064630 (Version 1)
Quarter: 2015Q2

REPORT INFORMATION
  Report Type: Spontaneous
  Country: TR (occurrence: TR)
  Receive Date: 20150424
  Receipt Date: 20150424
  Transmission Date: 20150821
  Serious: Yes (Death, Hospitalization)
  Sender: FDA-Public Use
  Company Number: TR-IMPAX LABORATORIES, INC-2015-IPXL-00450

PATIENT

DRUGS (4)
  1. DIGOXIN. [Suspect]
     Active Substance: DIGOXIN
     Indication: LEFT VENTRICULAR DYSFUNCTION
     Dosage: 0.25 MG, DAILY
     Route: 065
  2. DIGOXIN. [Suspect]
     Active Substance: DIGOXIN
     Indication: ATRIAL FIBRILLATION
  3. DIGOXIN. [Suspect]
     Active Substance: DIGOXIN
     Indication: ATRIAL FIBRILLATION
     Dosage: 0.125 MG, DAILY
     Route: 065
  4. DIGOXIN. [Suspect]
     Active Substance: DIGOXIN
     Indication: LEFT VENTRICULAR DYSFUNCTION

REACTIONS (15)
  - Decreased appetite [Unknown]
  - Ischaemic stroke [Fatal]
  - Ventricular fibrillation [Fatal]
  - Toxicity to various agents [Fatal]
  - Cardio-respiratory arrest [Unknown]
  - Diarrhoea [Unknown]
  - Syncope [Unknown]
  - Nausea [Unknown]
  - Vomiting [Unknown]
  - Visual impairment [Unknown]
  - Off label use [Unknown]
  - Sudden cardiac death [Fatal]
  - Presyncope [Unknown]
  - Ventricular tachycardia [Fatal]
  - Palpitations [Unknown]

NARRATIVE: CASE EVENT DATE: 2012
